FAERS Safety Report 4729916-3 (Version None)
Quarter: 2005Q3

REPORT INFORMATION
  Report Type: 
  Country: None (occurrence: None)
  Receive Date: 20050728
  Receipt Date: 20050712
  Transmission Date: 20060218
  Serious: Yes (Hospitalization, Other)
  Sender: FDA-Public Use
  Company Number: CA-2005-007813

PATIENT
  Age: 54 Year
  Sex: Male

DRUGS (15)
  1. BETASERON [Suspect]
     Indication: SECONDARY PROGRESSIVE MULTIPLE SCLEROSIS
     Dosage: 8 MIU, EVERY 2D, SUBCUTANEOUS
     Route: 058
     Dates: start: 19990317
  2. GABAPENTIN [Suspect]
     Indication: MUSCLE SPASMS
  3. CIPROFLOXACIN [Concomitant]
  4. BACLOFEN [Concomitant]
  5. ZANAFLEX [Concomitant]
  6. AMITRIPTYLINE HCL [Concomitant]
  7. DIOVAN ^NOVARTIS^ (VALSARTAN) [Concomitant]
  8. LASIX [Concomitant]
  9. VITAMIN B-12 [Concomitant]
  10. SIMVASTATIN [Concomitant]
  11. METOPROLOL TARTRATE [Concomitant]
  12. RIVASA (ACETYLSALICYLIC ACID) [Concomitant]
  13. NEXIUM [Concomitant]
  14. SLOW-K [Concomitant]
  15. HYDROCHLOROTHIAZIDE [Concomitant]

REACTIONS (15)
  - BLOOD PRESSURE DECREASED [None]
  - BLOOD PRESSURE INCREASED [None]
  - CARDIAC ARREST [None]
  - CATHETER RELATED COMPLICATION [None]
  - CONDITION AGGRAVATED [None]
  - CYSTITIS [None]
  - DYSPNOEA [None]
  - HYPOKINESIA [None]
  - MULTIPLE SCLEROSIS [None]
  - MUSCLE DISORDER [None]
  - NAUSEA [None]
  - OEDEMA PERIPHERAL [None]
  - PYREXIA [None]
  - SEPSIS [None]
  - URINARY TRACT INFECTION [None]
